FAERS Safety Report 4500760-5 (Version None)
Quarter: 2004Q4

REPORT INFORMATION
  Report Type: 
  Country: None (occurrence: None)
  Receive Date: 20041115
  Receipt Date: 20040802
  Transmission Date: 20050328
  Serious: Yes (Hospitalization)
  Sender: FDA-Public Use
  Company Number: 200413101FR

PATIENT
  Age: 60 Year
  Sex: Female
  Weight: 65 kg

DRUGS (4)
  1. LANTUS [Suspect]
     Indication: DIABETES MELLITUS
     Route: 058
     Dates: start: 20040601
  2. NOVORAPID [Concomitant]
     Indication: DIABETES MELLITUS
     Route: 058
     Dates: start: 20040601
  3. GLUCOPHAGE [Concomitant]
     Indication: DIABETES MELLITUS
     Route: 058
     Dates: start: 20030801
  4. LEVOTHYROX [Concomitant]
     Route: 048

REACTIONS (3)
  - HEADACHE [None]
  - MALAISE [None]
  - VERTIGO [None]
